FAERS Safety Report 8493953-6 (Version None)
Quarter: 2012Q3

REPORT INFORMATION
  Report Type: 
  Country: None (occurrence: None)
  Receive Date: 20120709
  Receipt Date: 20120130
  Transmission Date: 20120928
  Serious: Yes (Hospitalization, Other)
  Sender: FDA-Public Use
  Company Number: US-JNJCP-30000088745

PATIENT
  Age: 20 Month
  Sex: Male
  Weight: 11 kg

DRUGS (1)
  1. AVEENO BABY CALMING COMFORT LOTION USA ABCCLTUS [Suspect]
     Dosage: QUARTER SIZE AMOUNT, TWICE A DAY
     Route: 061

REACTIONS (1)
  - STAPHYLOCOCCAL INFECTION [None]
